FAERS Safety Report 9035487 (Version 1)
Quarter: 2013Q1

REPORT INFORMATION
  Report Type: Report from Study
  Country: US (occurrence: US)
  Receive Date: 20130129
  Receipt Date: 20130129
  Transmission Date: 20140127
  Serious: No
  Sender: FDA-Public Use
  Company Number: US-ABBOTT-12P-163-0906626-00

PATIENT
  Sex: Male
  Weight: 181.6 kg

DRUGS (16)
  1. HUMIRA 40 MG/0.8 ML PEN [Suspect]
     Indication: CROHN^S DISEASE
     Dates: start: 2011
  2. PENTOXIFYLLINE [Concomitant]
     Indication: ULCER
  3. B COMPLEX VITAMINS [Concomitant]
     Indication: VITAMIN SUPPLEMENTATION
  4. CALCIUM MAGNESIUM [Concomitant]
     Indication: MINERAL SUPPLEMENTATION
  5. OMEGA 3 FISH OIL [Concomitant]
     Indication: VITAMIN SUPPLEMENTATION
  6. ZINC [Concomitant]
     Indication: VITAMIN SUPPLEMENTATION
  7. VITAMIN C [Concomitant]
     Indication: VITAMIN SUPPLEMENTATION
  8. CELEBREX [Concomitant]
     Indication: RHEUMATOID ARTHRITIS
  9. SIMVASTATIN [Concomitant]
     Indication: BLOOD CHOLESTEROL INCREASED
  10. PRADAXA [Concomitant]
     Indication: PULMONARY EMBOLISM
  11. SPIRONOLACTONE [Concomitant]
     Indication: OEDEMA PERIPHERAL
  12. UNNAMED MEDICATION [Concomitant]
     Indication: HYPERTENSION
  13. ASACOL [Concomitant]
     Indication: CROHN^S DISEASE
  14. POTASSIUM [Concomitant]
     Indication: MINERAL SUPPLEMENTATION
  15. METFORMIN [Concomitant]
     Indication: DECREASED APPETITE
  16. METFORMIN [Concomitant]
     Indication: GLUCOSE TOLERANCE IMPAIRED

REACTIONS (3)
  - Injection site pain [Not Recovered/Not Resolved]
  - Gout [Not Recovered/Not Resolved]
  - Weight decreased [Unknown]
